FAERS Safety Report 21751431 (Version 1)
Quarter: 2022Q4

REPORT INFORMATION
  Report Type: Spontaneous
  Country: US (occurrence: US)
  Receive Date: 20221220
  Receipt Date: 20221220
  Transmission Date: 20230112
  Serious: Yes (Hospitalization)
  Sender: FDA-Public Use
  Company Number: US-MALLINCKRODT-T202206465

PATIENT
  Sex: Female

DRUGS (2)
  1. H.P. ACTHAR [Suspect]
     Active Substance: CORTICOTROPIN
     Indication: Eye disorder
     Dosage: 0.1 MILLILITER, EVERY TUESDAY, THURSDAY, SATURDAY AND SUNDAY FOR 4 WEEKS
     Route: 058
     Dates: start: 202111
  2. H.P. ACTHAR [Suspect]
     Active Substance: CORTICOTROPIN
     Indication: Myoclonus

REACTIONS (3)
  - Myoclonus [Unknown]
  - Eye disorder [Unknown]
  - Condition aggravated [Unknown]
